FAERS Safety Report 11781865 (Version 2)
Quarter: 2015Q4

REPORT INFORMATION
  Report Type: Spontaneous
  Country: US (occurrence: US)
  Receive Date: 20151126
  Receipt Date: 20151222
  Transmission Date: 20160305
  Serious: Yes (Other)
  Sender: FDA-Public Use
  Company Number: US-ASTRAZENECA-2015SF12959

PATIENT
  Age: 53 Year
  Sex: Female
  Weight: 78.5 kg

DRUGS (9)
  1. COUMADIN [Concomitant]
     Active Substance: WARFARIN SODIUM
     Route: 048
  2. BYDUREON [Suspect]
     Active Substance: EXENATIDE
     Indication: TYPE 2 DIABETES MELLITUS
     Route: 058
     Dates: start: 2015, end: 20151112
  3. LISINOPRIL. [Suspect]
     Active Substance: LISINOPRIL
     Route: 048
  4. ATORVASTATIN CALCIUM. [Concomitant]
     Active Substance: ATORVASTATIN CALCIUM
     Dosage: HALF TABLET DAILY
     Route: 048
  5. MOTRIN [Concomitant]
     Active Substance: IBUPROFEN
  6. INSULIN GLARGINE [Concomitant]
     Active Substance: INSULIN GLARGINE
  7. METFORMIN [Concomitant]
     Active Substance: METFORMIN HYDROCHLORIDE
  8. GLIMEPIRIDE. [Concomitant]
     Active Substance: GLIMEPIRIDE
     Route: 048
  9. AKA HUMALOG [Concomitant]
     Dosage: 100 UNITS/ML, EVERY MORNING WITH BREAKFAST
     Route: 058

REACTIONS (12)
  - White blood cell count increased [Unknown]
  - Tachycardia [Unknown]
  - Anxiety [Unknown]
  - Proteinuria [Unknown]
  - Drug ineffective [Unknown]
  - Haemoglobin increased [Unknown]
  - Blood glucose decreased [Unknown]
  - Off label use [Unknown]
  - Dyslipidaemia [Unknown]
  - Dysuria [Unknown]
  - Pancreatitis acute [Recovering/Resolving]
  - Malaise [Unknown]

NARRATIVE: CASE EVENT DATE: 201511
